FAERS Safety Report 10990648 (Version 1)
Quarter: 2015Q1

REPORT INFORMATION
  Report Type: Spontaneous
  Country: US (occurrence: None)
  Receive Date: 20150331
  Receipt Date: 20150331
  Transmission Date: 20150721
  Serious: Yes (Hospitalization)
  Sender: FDA-Public Use
  Company Number: 2014000047

PATIENT
  Age: 54 Year
  Sex: Male
  Weight: 111.5 kg

DRUGS (11)
  1. ESCITALOPRAM OXALATE (ESCITALOPRAM OXALATE) [Suspect]
     Active Substance: ESCITALOPRAM OXALATE
     Indication: DEPRESSION
     Route: 048
     Dates: start: 2008
  2. BUMETANIDE. [Concomitant]
     Active Substance: BUMETANIDE
  3. ASPIRIN (ACETYLSALICYLIC ACID [Concomitant]
  4. ISOSORBIDE MONONITRATE. [Concomitant]
     Active Substance: ISOSORBIDE MONONITRATE
  5. LABETALOL [Concomitant]
     Active Substance: LABETALOL\LABETALOL HYDROCHLORIDE
  6. SIMVASTATIN. [Concomitant]
     Active Substance: SIMVASTATIN
  7. TRAZODONE [Suspect]
     Active Substance: TRAZODONE HYDROCHLORIDE
     Indication: SCHIZOPHRENIA
     Route: 048
     Dates: start: 2009
  8. LOSARTAN [Concomitant]
     Active Substance: LOSARTAN
  9. ATORVASTATIN CALCIUM (ATORVASTATIN CALCIUM) TABLET [Suspect]
     Active Substance: ATORVASTATIN CALCIUM
     Indication: BLOOD CHOLESTEROL INCREASED
     Route: 048
     Dates: start: 20140603
  10. LANTUS [Concomitant]
     Active Substance: INSULIN GLARGINE
  11. INVEGA (PALIPERIDONE PALMITATE) [Concomitant]

REACTIONS (2)
  - Drug dose omission [None]
  - Suicidal ideation [None]

NARRATIVE: CASE EVENT DATE: 20140702
